FAERS Safety Report 8769392 (Version 1)
Quarter: 2012Q4

REPORT INFORMATION
  Report Type: 
  Country: US (occurrence: US)
  Receive Date: 20120904
  Receipt Date: 20120904
  Transmission Date: 20130627
  Serious: No
  Sender: FDA-Public Use
  Company Number: US-B.I. PHARMACEUTICALS,INC./RIDGEFIELD-2012-BP-21083BP

PATIENT
  Age: 78 Year
  Sex: Male

DRUGS (7)
  1. TRADJENTA [Suspect]
     Dosage: 5 mg
     Dates: start: 20120124, end: 20120411
  2. AVODART [Concomitant]
  3. ALDARA [Concomitant]
  4. SYNTHROID [Concomitant]
  5. SIMCOR [Concomitant]
  6. ARICEPT [Concomitant]
  7. ACTOPLUS [Concomitant]

REACTIONS (2)
  - Drug eruption [Unknown]
  - Rash [Unknown]
